FAERS Safety Report 15338059 (Version 1)
Quarter: 2018Q3

REPORT INFORMATION
  Report Type: Spontaneous
  Country: AU (occurrence: AU)
  Receive Date: 20180831
  Receipt Date: 20180831
  Transmission Date: 20181010
  Serious: Yes (Other)
  Sender: FDA-Public Use
  Company Number: AU-AMGEN-AUSSP2018118023

PATIENT
  Sex: Female

DRUGS (1)
  1. PROLIA [Suspect]
     Active Substance: DENOSUMAB
     Indication: SPINAL FRACTURE
     Dosage: UNK
     Route: 065
     Dates: start: 2017

REACTIONS (2)
  - Osteonecrosis of jaw [Unknown]
  - Jaw fracture [Recovering/Resolving]

NARRATIVE: CASE EVENT DATE: 2018
